FAERS Safety Report 6453576-7 (Version None)
Quarter: 2009Q4

REPORT INFORMATION
  Report Type: 
  Country: None (occurrence: None)
  Receive Date: 20091124
  Receipt Date: 20091118
  Transmission Date: 20100525
  Serious: Yes (Other)
  Sender: FDA-Public Use
  Company Number: CA-BAYER-200940119NA

PATIENT
  Age: 34 Year
  Sex: Female

DRUGS (2)
  1. YASMIN [Suspect]
     Indication: DRUG USE FOR UNKNOWN INDICATION
     Route: 048
     Dates: start: 20091101, end: 20091101
  2. PANTOPRAZOLE [Concomitant]
     Route: 048

REACTIONS (6)
  - ABDOMINAL PAIN UPPER [None]
  - FINGER DEFORMITY [None]
  - HAEMATEMESIS [None]
  - JOINT SWELLING [None]
  - NAUSEA [None]
  - PAIN IN EXTREMITY [None]
